FAERS Safety Report 15494410 (Version 1)
Quarter: 2018Q4

REPORT INFORMATION
  Report Type: Spontaneous
  Country: US (occurrence: US)
  Receive Date: 20181012
  Receipt Date: 20181012
  Transmission Date: 20190205
  Serious: Yes (Hospitalization)
  Sender: FDA-Public Use
  Company Number: None

PATIENT
  Sex: Female

DRUGS (3)
  1. IBRANCE [Suspect]
     Active Substance: PALBOCICLIB
     Indication: BONE CANCER
     Dosage: ?          OTHER FREQUENCY:QD FOR 21 DAYS;?
     Route: 048
     Dates: start: 20180413
  2. LETROZOLE. [Concomitant]
     Active Substance: LETROZOLE
  3. MULTIVITAMIN ADULT [Concomitant]

REACTIONS (1)
  - Fatigue [None]
